FAERS Safety Report 6298815-0 (Version None)
Quarter: 2009Q3

REPORT INFORMATION
  Report Type: 
  Country: None (occurrence: None)
  Receive Date: 20090806
  Receipt Date: 20090729
  Transmission Date: 20100115
  Serious: Yes (Hospitalization, Other)
  Sender: FDA-Public Use
  Company Number: DE-PFIZER INC-2009249834

PATIENT
  Age: 32 Year

DRUGS (1)
  1. ZELDOX [Suspect]
     Indication: SCHIZOPHRENIA, PARANOID TYPE
     Dosage: 1X20MG IN THE MORNING, 1X40MG IN THE EVENING
     Route: 048
     Dates: start: 20050905

REACTIONS (2)
  - BLOOD GLUCOSE INCREASED [None]
  - CAESAREAN SECTION [None]
